FAERS Safety Report 12842732 (Version 6)
Quarter: 2017Q1

REPORT INFORMATION
  Report Type: Spontaneous
  Country: US (occurrence: US)
  Receive Date: 20161013
  Receipt Date: 20170117
  Transmission Date: 20170428
  Serious: Yes (Other)
  Sender: FDA-Public Use
  Company Number: US-PFIZER INC-2016476673

PATIENT
  Age: 69 Year
  Sex: Female

DRUGS (3)
  1. LYRICA [Suspect]
     Active Substance: PREGABALIN
     Dosage: 150 MG, 1X/DAY
     Route: 048
  2. LYRICA [Suspect]
     Active Substance: PREGABALIN
     Dosage: 100 MG, 2X/DAY
     Dates: start: 2008
  3. LYRICA [Suspect]
     Active Substance: PREGABALIN
     Indication: FIBROMYALGIA
     Dosage: 150 MG, 2X/DAY
     Route: 048

REACTIONS (12)
  - Breast cancer [Recovered/Resolved]
  - Macular degeneration [Unknown]
  - Breast disorder [Unknown]
  - Eye haemorrhage [Unknown]
  - Blindness [Not Recovered/Not Resolved]
  - Pneumonia [Unknown]
  - Lacrimation increased [Unknown]
  - Thyroid cancer [Recovered/Resolved]
  - Sinusitis [Not Recovered/Not Resolved]
  - Dry eye [Unknown]
  - Cerebrovascular accident [Unknown]
  - Intentional product use issue [Unknown]

NARRATIVE: CASE EVENT DATE: 2010
